FAERS Safety Report 11881597 (Version 2)
Quarter: 2016Q1

REPORT INFORMATION
  Report Type: Spontaneous
  Country: JP (occurrence: JP)
  Receive Date: 20151231
  Receipt Date: 20160122
  Transmission Date: 20160526
  Serious: No
  Sender: FDA-Public Use
  Company Number: JP-AMGEN-JPNSP2015139927

PATIENT
  Age: 74 Year
  Sex: Male
  Weight: 43 kg

DRUGS (6)
  1. RANMARK [Suspect]
     Active Substance: DENOSUMAB
     Indication: METASTASES TO BONE
     Dosage: 120 MG, QWK
     Route: 058
     Dates: start: 20151208, end: 20151208
  2. HOCHUEKKITO                        /07973001/ [Suspect]
     Active Substance: HERBALS
     Indication: DECREASED APPETITE
  3. TRAMAL [Concomitant]
     Active Substance: TRAMADOL
     Indication: ANALGESIC THERAPY
     Dosage: 25 MG, QID
     Route: 048
     Dates: start: 20151124
  4. TRAMAL [Concomitant]
     Active Substance: TRAMADOL
     Indication: NEURALGIA
  5. HOCHUEKKITO                        /07973001/ [Suspect]
     Active Substance: HERBALS
     Indication: ROUTINE HEALTH MAINTENANCE
     Dosage: 1 G, TID
     Route: 048
     Dates: start: 20151208, end: 20151212
  6. MAGMITT [Concomitant]
     Active Substance: MAGNESIUM OXIDE
     Indication: CONSTIPATION
     Dosage: 500 MG, BID
     Route: 048
     Dates: start: 20151124

REACTIONS (1)
  - Hepatic function abnormal [Recovering/Resolving]

NARRATIVE: CASE EVENT DATE: 20151212
